FAERS Safety Report 10790817 (Version 2)
Quarter: 2015Q1

REPORT INFORMATION
  Report Type: Spontaneous
  Country: DE (occurrence: DE)
  Receive Date: 20150212
  Receipt Date: 20150218
  Transmission Date: 20150721
  Serious: Yes (Death)
  Sender: FDA-Public Use
  Company Number: DE-PFIZER INC-2015053136

PATIENT
  Age: 77 Year
  Sex: Male

DRUGS (6)
  1. UNACID [Suspect]
     Active Substance: AMPICILLIN SODIUM\SULBACTAM SODIUM
     Dosage: UNK
     Dates: start: 201406
  2. RISPERIDONE. [Concomitant]
     Active Substance: RISPERIDONE
     Dosage: LONG-TERM THERAPY
  3. TAMSULOSIN [Concomitant]
     Active Substance: TAMSULOSIN
     Dosage: LONG-TERM THERAPY
  4. FINASTERIDE. [Concomitant]
     Active Substance: FINASTERIDE
     Dosage: LONG-TERM THERAPY
  5. DONEPEZIL [Concomitant]
     Active Substance: DONEPEZIL
     Dosage: LONG-TERM THERAPY
  6. MELPERONE [Concomitant]
     Active Substance: MELPERONE
     Dosage: LONG-TERM THERAPY

REACTIONS (4)
  - Hepatic failure [Fatal]
  - Drug-induced liver injury [Fatal]
  - Cholestasis [Fatal]
  - Hepatic necrosis [Fatal]

NARRATIVE: CASE EVENT DATE: 201406
